FAERS Safety Report 6576323-7 (Version None)
Quarter: 2010Q1

REPORT INFORMATION
  Report Type: 
  Country: None (occurrence: None)
  Receive Date: 20100210
  Receipt Date: 20100204
  Transmission Date: 20100710
  Serious: Yes (Hospitalization)
  Sender: FDA-Public Use
  Company Number: US-ALLERGAN-1001487US

PATIENT
  Age: 60 Year
  Sex: Male

DRUGS (4)
  1. BOTOX [Suspect]
     Indication: BLEPHAROSPASM
     Dosage: 100 UNITS, SINGLE
     Route: 030
     Dates: start: 20100202, end: 20100202
  2. BOTOX [Suspect]
     Dosage: UNK
     Dates: start: 20091101, end: 20091101
  3. DIAVAN [Concomitant]
  4. CRESTOR [Concomitant]

REACTIONS (4)
  - DIZZINESS [None]
  - EYE SWELLING [None]
  - LOSS OF CONSCIOUSNESS [None]
  - MALAISE [None]
